FAERS Safety Report 7583724-7 (Version None)
Quarter: 2011Q2

REPORT INFORMATION
  Report Type: 
  Country: None (occurrence: None)
  Receive Date: 20110630
  Receipt Date: 20110623
  Transmission Date: 20111010
  Serious: Yes (Hospitalization)
  Sender: FDA-Public Use
  Company Number: B0729600A

PATIENT
  Sex: Female

DRUGS (4)
  1. HYDROCHLOROTHIAZIDE + RAMIPRIL [Concomitant]
     Route: 048
  2. LANOXIN [Suspect]
     Indication: ARRHYTHMIA
     Dosage: .25MG PER DAY
     Route: 048
     Dates: start: 20081201, end: 20100828
  3. VERPAMIL HCL [Concomitant]
     Route: 048
  4. COUMADIN [Concomitant]
     Route: 048

REACTIONS (3)
  - TACHYCARDIA [None]
  - TOXICITY TO VARIOUS AGENTS [None]
  - PALPITATIONS [None]
